FAERS Safety Report 24324600 (Version 2)
Quarter: 2024Q4

REPORT INFORMATION
  Report Type: Spontaneous
  Country: US (occurrence: US)
  Receive Date: 20240916
  Receipt Date: 20241016
  Transmission Date: 20250115
  Serious: No
  Sender: BRISTOL-MYERS SQUIBB COMPANY
  Company Number: US-BRISTOL-MYERS SQUIBB COMPANY-2024-146784

PATIENT
  Age: 71 Year
  Sex: Female

DRUGS (2)
  1. POMALYST [Suspect]
     Active Substance: POMALIDOMIDE
     Indication: Plasma cell myeloma refractory
     Route: 048
  2. POMALYST [Suspect]
     Active Substance: POMALIDOMIDE
     Dosage: FREQUENCY - 3 WEEKS ON FOLLOWED BY 1 WEEK OFF.
     Route: 048
     Dates: start: 202408

REACTIONS (4)
  - Muscle spasms [Recovering/Resolving]
  - Joint lock [Recovering/Resolving]
  - Off label use [Unknown]
  - Increased upper airway secretion [Unknown]
